FAERS Safety Report 4523471-9 (Version None)
Quarter: 2004Q4

REPORT INFORMATION
  Report Type: 
  Country: None (occurrence: None)
  Receive Date: 20041117
  Receipt Date: 20040629
  Transmission Date: 20050328
  Serious: Yes (Life-Threatening)
  Sender: FDA-Public Use
  Company Number: US-JNJFOC-20040705774

PATIENT
  Age: 72 Year
  Sex: Female

DRUGS (15)
  1. LEVOFLOXACIN [Suspect]
     Indication: CHRONIC OBSTRUCTIVE AIRWAYS DISEASE EXACERBATED
     Dosage: 500 MG, 1 IN 24 HOUR, INTRAVENOUS
     Route: 042
     Dates: start: 20030228, end: 20030302
  2. LEVOFLOXACIN [Suspect]
     Indication: PNEUMONIA
     Dosage: 500 MG, 1 IN 24 HOUR, INTRAVENOUS
     Route: 042
     Dates: start: 20030228, end: 20030302
  3. ALBUTEROL [Concomitant]
  4. CALCIUM (CALCIUM) [Concomitant]
  5. CAPTOPRIL [Concomitant]
  6. DILTIAZEM [Concomitant]
  7. CITALOPRAM [Concomitant]
  8. FUROSEMIDE [Concomitant]
  9. HYDROCODONE (HYDROCODONE) [Concomitant]
  10. MULTIVITAMIN (MULTIVITAMINS) [Concomitant]
  11. POTASSIUM (POTASSIUM) [Concomitant]
  12. PREDNISONE [Concomitant]
  13. TERIPARATIDE (TERIPARATIDE) [Concomitant]
  14. VITAMIN E [Concomitant]
  15. WARFARIN SODIUM [Concomitant]

REACTIONS (2)
  - LOSS OF CONSCIOUSNESS [None]
  - TORSADE DE POINTES [None]
